FAERS Safety Report 18410535 (Version 1)
Quarter: 2020Q4

REPORT INFORMATION
  Report Type: Spontaneous
  Country: US (occurrence: US)
  Receive Date: 20201021
  Receipt Date: 20201021
  Transmission Date: 20210114
  Serious: No
  Sender: FDA-Public Use
  Company Number: US-PFIZER INC-2020405784

PATIENT
  Age: 21 Year
  Sex: Female

DRUGS (2)
  1. OZANIMOD. [Suspect]
     Active Substance: OZANIMOD
     Indication: MULTIPLE SCLEROSIS
     Dosage: 0.92 MG, 1X/DAY
     Route: 048
     Dates: start: 20200701
  2. ZOLOFT [Suspect]
     Active Substance: SERTRALINE HYDROCHLORIDE
     Indication: DEPRESSION
     Dosage: UNK
     Dates: end: 20200908

REACTIONS (2)
  - Drug withdrawal syndrome [Unknown]
  - Headache [Unknown]
